FAERS Safety Report 13335705 (Version 2)
Quarter: 2017Q1

REPORT INFORMATION
  Report Type: Spontaneous
  Country: JP (occurrence: JP)
  Receive Date: 20170314
  Receipt Date: 20170322
  Transmission Date: 20170428
  Serious: Yes (Other)
  Sender: FDA-Public Use
  Company Number: JP-PFIZER INC-2017102100

PATIENT
  Age: 9 Decade

DRUGS (2)
  1. HALCION [Suspect]
     Active Substance: TRIAZOLAM
     Dosage: 0.25 MG, DAILY
     Route: 048
  2. HALCION [Suspect]
     Active Substance: TRIAZOLAM
     Dosage: 0.25 MG, AS NEEDED
     Route: 048

REACTIONS (2)
  - Inappropriate schedule of drug administration [Unknown]
  - Delirium [Unknown]
